FAERS Safety Report 4707896-4 (Version None)
Quarter: 2005Q3

REPORT INFORMATION
  Report Type: 
  Country: None (occurrence: None)
  Receive Date: 20050707
  Receipt Date: 20041103
  Transmission Date: 20060218
  Serious: No
  Sender: FDA-Public Use
  Company Number: US-BRISTOL-MYERS SQUIBB COMPANY-12754768

PATIENT
  Age: 58 Year
  Sex: Male
  Weight: 73 kg

DRUGS (3)
  1. SINEMET CR [Suspect]
     Indication: PARKINSON'S DISEASE
     Dosage: DURATION OF THERAPY:  COUPLE OF MONTHS
     Route: 048
     Dates: start: 20040101, end: 20041001
  2. MULTI-VITAMIN [Concomitant]
  3. CALCIUM GLUCONATE [Concomitant]

REACTIONS (2)
  - VISUAL DISTURBANCE [None]
  - VISUAL FIELD DEFECT [None]
